FAERS Safety Report 16452096 (Version 1)
Quarter: 2019Q2

REPORT INFORMATION
  Report Type: Spontaneous
  Country: US (occurrence: US)
  Receive Date: 20190619
  Receipt Date: 20190619
  Transmission Date: 20190711
  Serious: Yes (Other)
  Sender: FDA-Public Use
  Company Number: US-ROCHE-2204285

PATIENT
  Sex: Female

DRUGS (8)
  1. ACTEMRA [Suspect]
     Active Substance: TOCILIZUMAB
     Indication: RHEUMATOID ARTHRITIS
     Route: 065
     Dates: end: 20140720
  2. ACTHAR [Concomitant]
     Active Substance: CORTICOTROPIN
     Route: 065
     Dates: start: 201801, end: 201808
  3. ORENCIA [Concomitant]
     Active Substance: ABATACEPT
     Route: 065
     Dates: start: 201608, end: 201612
  4. NASONEX [Concomitant]
     Active Substance: MOMETASONE FUROATE
  5. REMICADE [Concomitant]
     Active Substance: INFLIXIMAB
  6. RITUXAN [Suspect]
     Active Substance: RITUXIMAB
     Indication: RHEUMATOID ARTHRITIS
     Route: 065
     Dates: start: 201412, end: 201707
  7. ARAVA [Concomitant]
     Active Substance: LEFLUNOMIDE
  8. METHOTREXATE. [Concomitant]
     Active Substance: METHOTREXATE

REACTIONS (2)
  - Urticaria [Unknown]
  - Escherichia sepsis [Unknown]
